FAERS Safety Report 25021770 (Version 1)
Quarter: 2025Q1

REPORT INFORMATION
  Report Type: Report from Study
  Country: US (occurrence: US)
  Receive Date: 20250228
  Receipt Date: 20250228
  Transmission Date: 20250408
  Serious: Yes (Other)
  Sender: ABBVIE
  Company Number: US-ABBVIE-6150440

PATIENT
  Sex: Male

DRUGS (1)
  1. HUMIRA [Suspect]
     Active Substance: ADALIMUMAB
     Indication: Crohn^s disease
     Route: 058
     Dates: start: 20120201

REACTIONS (9)
  - Hernia [Unknown]
  - Fall [Unknown]
  - Neck injury [Unknown]
  - Spinal column injury [Unknown]
  - Suture insertion [Unknown]
  - Neck pain [Unknown]
  - Spinal pain [Unknown]
  - Poor quality sleep [Unknown]
  - Fatigue [Unknown]

NARRATIVE: CASE EVENT DATE: 20241001
